FAERS Safety Report 7415086-X (Version None)
Quarter: 2011Q2

REPORT INFORMATION
  Report Type: 
  Country: None (occurrence: None)
  Receive Date: 20110414
  Receipt Date: 20110404
  Transmission Date: 20111010
  Serious: Yes (Hospitalization, Other)
  Sender: FDA-Public Use
  Company Number: JP-ROCHE-770245

PATIENT
  Sex: Male

DRUGS (10)
  1. BLOPRESS [Concomitant]
     Route: 048
     Dates: start: 20101213
  2. IRINOTECAN HCL [Suspect]
     Route: 041
     Dates: start: 20101213, end: 20110228
  3. LEVOFOLINATE [Suspect]
     Indication: COLON CANCER
     Route: 041
     Dates: start: 20101018, end: 20110228
  4. FLUOROURACIL [Suspect]
     Indication: COLON CANCER
     Route: 041
     Dates: start: 20101018, end: 20110228
  5. IRINOTECAN HCL [Suspect]
     Indication: COLON CANCER
     Route: 041
     Dates: start: 20101018, end: 20101115
  6. BEVACIZUMAB [Suspect]
     Indication: COLON CANCER
     Route: 041
     Dates: start: 20101018, end: 20110228
  7. FLUOROURACIL [Suspect]
     Dosage: STOP DATE 2011
     Route: 041
     Dates: start: 20101018
  8. PARIET [Concomitant]
     Route: 048
     Dates: start: 20110323
  9. ALLOID [Concomitant]
     Indication: DYSPEPSIA
     Dosage: PERORAL LIQUID PREPARATION
     Route: 048
     Dates: start: 20110228
  10. BLOPRESS [Concomitant]
     Route: 048
     Dates: start: 20101227

REACTIONS (3)
  - CHOLECYSTITIS ACUTE [None]
  - WHITE BLOOD CELL COUNT ABNORMAL [None]
  - ABDOMINAL PAIN UPPER [None]
